FAERS Safety Report 8445334-9 (Version None)
Quarter: 2012Q2

REPORT INFORMATION
  Report Type: 
  Country: None (occurrence: None)
  Receive Date: 20120612
  Receipt Date: 20120612
  Transmission Date: 20120825
  Serious: Yes (Other)
  Sender: FDA-Public Use
  Company Number: None

PATIENT
  Age: 72 Year
  Sex: Female

DRUGS (3)
  1. PROLIA [Suspect]
     Indication: ARTHRITIS
     Dosage: EVERY 6 MONTHS
     Dates: start: 20120606, end: 20120606
  2. CYVASTIAN [Concomitant]
  3. BETA BLOCKER [Concomitant]

REACTIONS (7)
  - INFLUENZA LIKE ILLNESS [None]
  - HYPERHIDROSIS [None]
  - DYSURIA [None]
  - CHILLS [None]
  - DIARRHOEA [None]
  - PYREXIA [None]
  - MICTURITION URGENCY [None]
